FAERS Safety Report 9203856 (Version 1)
Quarter: 2013Q2

REPORT INFORMATION
  Report Type: Spontaneous
  Country: US (occurrence: US)
  Receive Date: 20130402
  Receipt Date: 20130402
  Transmission Date: 20140414
  Serious: Yes (Other)
  Sender: FDA-Public Use
  Company Number: US-SANOFI-AVENTIS-2013SA030429

PATIENT
  Age: 14 Year
  Sex: Female

DRUGS (7)
  1. DOCETAXEL [Suspect]
     Indication: SYNOVIAL SARCOMA
     Dosage: GIVEN ON DAY 8 FOR 2 CYCLES AT 28 DAYS
     Route: 065
  2. DOCETAXEL [Suspect]
     Indication: SYNOVIAL SARCOMA
     Dosage: 3RD AND 4TH CYCLE WERE ADMINISTERED
     Route: 065
  3. GEMCITABINE [Suspect]
     Indication: SYNOVIAL SARCOMA
     Dosage: 3RD AND 4TH CYCLE WERE ADMINISTERED
     Route: 065
  4. GEMCITABINE [Suspect]
     Indication: SYNOVIAL SARCOMA
     Dosage: GIVEN ON DAY 1 AND 8 FOR 2 CYCLES AT 21 DAYS
     Route: 065
  5. THERAPEUTIC RADIOPHARMACEUTICALS [Suspect]
     Indication: SYNOVIAL SARCOMA
     Dosage: 28 GY (350 CGY IN 8 FRACTIONS)
     Route: 065
  6. THERAPEUTIC RADIOPHARMACEUTICALS [Suspect]
     Indication: SYNOVIAL SARCOMA
     Dosage: 20 GY IN 10 FRACTIONS
     Route: 065
  7. DEXAMETHASONE [Concomitant]
     Route: 042

REACTIONS (9)
  - Recall phenomenon [Recovering/Resolving]
  - Off label use [Unknown]
  - Swelling [Recovered/Resolved]
  - Compartment syndrome [Recovering/Resolving]
  - Pain [Recovered/Resolved]
  - Hypokinesia [Recovered/Resolved]
  - Muscle oedema [Recovering/Resolving]
  - Soft tissue mass [Recovering/Resolving]
  - Grip strength decreased [Recovered/Resolved]
